FAERS Safety Report 6500439-4 (Version None)
Quarter: 2009Q4

REPORT INFORMATION
  Report Type: 
  Country: None (occurrence: None)
  Receive Date: 20091216
  Receipt Date: 20091211
  Transmission Date: 20100525
  Serious: Yes (Hospitalization)
  Sender: FDA-Public Use
  Company Number: MA-ROCHE-674277

PATIENT
  Age: 65 Year
  Weight: 80 kg

DRUGS (2)
  1. BEVACIZUMAB [Suspect]
     Dosage: INDICATION REPORTED AS: MBC.
     Route: 042
     Dates: start: 20081221, end: 20090406
  2. DOCETAXEL [Suspect]
     Dosage: INDICATION REPORTED AS: MBC.
     Route: 042
     Dates: start: 20081221, end: 20090406

REACTIONS (1)
  - CARDIOMYOPATHY [None]
